FAERS Safety Report 24463476 (Version 1)
Quarter: 2024Q4

REPORT INFORMATION
  Report Type: Report from Study
  Country: US (occurrence: US)
  Receive Date: 20241018
  Receipt Date: 20241018
  Transmission Date: 20250115
  Serious: No
  Sender: ROCHE
  Company Number: US-ROCHE-3178083

PATIENT
  Age: 23 Year
  Sex: Female
  Weight: 70.0 kg

DRUGS (2)
  1. XOLAIR [Suspect]
     Active Substance: OMALIZUMAB
     Indication: Asthma
     Dosage: ON 30/AUG/2022 WAS THE LAST INJECTION DATE.
     Route: 058
  2. XOLAIR [Suspect]
     Active Substance: OMALIZUMAB

REACTIONS (3)
  - Blood immunoglobulin E increased [Unknown]
  - Off label use [Unknown]
  - Off label use [Unknown]
